FAERS Safety Report 9897757 (Version 1)
Quarter: 2014Q1

REPORT INFORMATION
  Report Type: Spontaneous
  Country: US (occurrence: US)
  Receive Date: 20140214
  Receipt Date: 20140214
  Transmission Date: 20141002
  Serious: No
  Sender: FDA-Public Use
  Company Number: US-ALEXION-A201400453

PATIENT
  Age: 51 Year
  Sex: Male

DRUGS (5)
  1. SOLIRIS 300MG [Suspect]
     Indication: ANTIPHOSPHOLIPID SYNDROME
     Dosage: 1200 MG, SINGLE
     Route: 042
  2. SOLIRIS 300MG [Suspect]
     Dosage: 900 MG, QW
     Route: 042
  3. SOLIRIS 300MG [Suspect]
     Dosage: 1200 MG, Q2W
     Route: 042
  4. SOLIRIS 300MG [Suspect]
     Dosage: UNK
  5. COUMADIN                           /00014802/ [Concomitant]
     Indication: ANTICOAGULANT THERAPY
     Dosage: UNK

REACTIONS (2)
  - Haematoma [Unknown]
  - Off label use [Unknown]
